FAERS Safety Report 19689734 (Version 1)
Quarter: 2021Q3

REPORT INFORMATION
  Report Type: Spontaneous
  Country: NO (occurrence: NO)
  Receive Date: 20210812
  Receipt Date: 20210812
  Transmission Date: 20211014
  Serious: Yes (Death)
  Sender: FDA-Public Use
  Company Number: NO-UNICHEM PHARMACEUTICALS (USA) INC-UCM202108-000740

PATIENT
  Sex: Female

DRUGS (1)
  1. AMLODIPINE [Suspect]
     Active Substance: AMLODIPINE BESYLATE
     Indication: OVERDOSE
     Dosage: UNKNOWN

REACTIONS (6)
  - Heart rate decreased [Fatal]
  - Pneumonia aspiration [Fatal]
  - Oxygen saturation decreased [Fatal]
  - Drug level increased [Fatal]
  - Blood pressure decreased [Fatal]
  - Overdose [Fatal]
